FAERS Safety Report 10597768 (Version 1)
Quarter: 2014Q4

REPORT INFORMATION
  Report Type: Spontaneous
  Country: NL (occurrence: NL)
  Receive Date: 20141121
  Receipt Date: 20141121
  Transmission Date: 20150529
  Serious: Yes (Hospitalization)
  Sender: FDA-Public Use
  Company Number: NL-JNJFOC-20141112776

PATIENT
  Age: 84 Year
  Sex: Male
  Weight: 65 kg

DRUGS (9)
  1. SERESTA [Concomitant]
     Active Substance: OXAZEPAM
     Route: 048
     Dates: start: 2013
  2. MEMANTINE HYDROCHLORIDE [Concomitant]
     Active Substance: MEMANTINE HYDROCHLORIDE
     Route: 048
     Dates: start: 2006
  3. PANTOPRAZOLE [Concomitant]
     Active Substance: PANTOPRAZOLE SODIUM
     Route: 048
     Dates: start: 2013
  4. REMINYL [Suspect]
     Active Substance: GALANTAMINE
     Indication: DEMENTIA ALZHEIMER^S TYPE
     Route: 048
     Dates: start: 2006, end: 20141021
  5. METOPROLOL [Interacting]
     Active Substance: METOPROLOL
     Indication: ATRIAL FIBRILLATION
     Route: 048
     Dates: start: 20130204, end: 20141019
  6. HALOPERIDOL. [Concomitant]
     Active Substance: HALOPERIDOL
     Route: 048
     Dates: start: 201401
  7. CALCICHEW D3 [Concomitant]
     Active Substance: CALCIUM\CHOLECALCIFEROL
     Dosage: 1000MG/800IE
     Route: 048
     Dates: start: 2013
  8. HYDROXOCOBALAMINE [Concomitant]
     Route: 065
     Dates: start: 2013
  9. ASPIRIN. [Concomitant]
     Active Substance: ASPIRIN
     Route: 048
     Dates: start: 2013

REACTIONS (2)
  - Drug interaction [Unknown]
  - Bradycardia [Recovered/Resolved]

NARRATIVE: CASE EVENT DATE: 20141019
